FAERS Safety Report 16915010 (Version 1)
Quarter: 2019Q4

REPORT INFORMATION
  Report Type: Spontaneous
  Country: GB (occurrence: GB)
  Receive Date: 20191014
  Receipt Date: 20191014
  Transmission Date: 20200122
  Serious: Yes (Other)
  Sender: FDA-Public Use
  Company Number: GB-ASTRAZENECA-2019SF44879

PATIENT
  Age: 70 Year
  Sex: Male

DRUGS (8)
  1. BEZAFIBRATE [Concomitant]
     Active Substance: BEZAFIBRATE
  2. DOXAZOSIN [Concomitant]
     Active Substance: DOXAZOSIN MESYLATE
  3. ATENOLOL. [Concomitant]
     Active Substance: ATENOLOL
  4. ATORVASTATIN [Concomitant]
     Active Substance: ATORVASTATIN
  5. DAPAGLIFLOZIN. [Suspect]
     Active Substance: DAPAGLIFLOZIN
     Indication: DIABETES MELLITUS
     Dosage: 10.0MG UNKNOWN
     Route: 048
     Dates: start: 20181115, end: 20190924
  6. GLICLAZIDE [Concomitant]
     Active Substance: GLICLAZIDE
  7. LANSOPRAZOLE. [Concomitant]
     Active Substance: LANSOPRAZOLE
  8. METFORMIN [Concomitant]
     Active Substance: METFORMIN HYDROCHLORIDE

REACTIONS (4)
  - Abdominal pain [Unknown]
  - Nightmare [Unknown]
  - Polyuria [Unknown]
  - Nocturia [Unknown]
